FAERS Safety Report 9201437 (Version 1)
Quarter: 2013Q2

REPORT INFORMATION
  Report Type: Spontaneous
  Country: US (occurrence: US)
  Receive Date: 20130401
  Receipt Date: 20130401
  Transmission Date: 20140414
  Serious: Yes (Other)
  Sender: FDA-Public Use
  Company Number: US-PFIZER INC-2013102256

PATIENT
  Age: 59 Year
  Sex: Female
  Weight: 90.7 kg

DRUGS (16)
  1. GABAPENTIN [Suspect]
     Indication: SYSTEMIC LUPUS ERYTHEMATOSUS
     Dosage: 400 MG, 3X/DAY
     Dates: start: 2001, end: 2013
  2. GABAPENTIN [Suspect]
     Indication: NEUROPATHY PERIPHERAL
  3. GABAPENTIN [Suspect]
     Indication: FIBROMYALGIA
  4. GABAPENTIN [Suspect]
     Indication: PROPHYLAXIS
  5. GABAPENTIN [Suspect]
     Indication: AUTONOMIC NERVOUS SYSTEM IMBALANCE
  6. GABAPENTIN [Suspect]
     Indication: CORONARY ARTERIAL STENT INSERTION
  7. NEURONTIN [Suspect]
     Indication: SYSTEMIC LUPUS ERYTHEMATOSUS
     Dosage: UNK
     Dates: start: 2013, end: 2013
  8. NEURONTIN [Suspect]
     Indication: NEUROPATHY PERIPHERAL
  9. NEURONTIN [Suspect]
     Indication: FIBROMYALGIA
  10. NEURONTIN [Suspect]
     Indication: CORONARY ARTERIAL STENT INSERTION
  11. NEURONTIN [Suspect]
     Indication: PROPHYLAXIS
  12. NEURONTIN [Suspect]
     Indication: AUTONOMIC NERVOUS SYSTEM IMBALANCE
  13. PREDNISOLONE [Suspect]
     Indication: SYSTEMIC LUPUS ERYTHEMATOSUS
     Dosage: 5 MG, 3X/DAY
  14. PREDNISOLONE [Suspect]
     Indication: INFLAMMATION
  15. BENADRYL [Suspect]
     Indication: MUSCLE SPASMS
     Dosage: UNK, DAILY AT NIGHT
     Dates: start: 2013
  16. BENADRYL [Suspect]
     Indication: NECK PAIN

REACTIONS (8)
  - Abasia [Unknown]
  - Bronchospasm [Not Recovered/Not Resolved]
  - Neck pain [Not Recovered/Not Resolved]
  - Sensation of heaviness [Not Recovered/Not Resolved]
  - Hangover [Not Recovered/Not Resolved]
  - Malaise [Not Recovered/Not Resolved]
  - Drug dose omission [Unknown]
  - Off label use [Unknown]
